FAERS Safety Report 4270832-1 (Version None)
Quarter: 2004Q1

REPORT INFORMATION
  Report Type: 
  Country: None (occurrence: None)
  Receive Date: 20040113
  Receipt Date: 20040107
  Transmission Date: 20041129
  Serious: Yes (Death, Other)
  Sender: FDA-Public Use
  Company Number: 2003182237GB

PATIENT
  Age: 70 Year
  Sex: Male

DRUGS (1)
  1. CAMPTOSAR [Suspect]
     Dates: start: 20031006, end: 20031006

REACTIONS (9)
  - BONE MARROW DEPRESSION [None]
  - CONFUSIONAL STATE [None]
  - DEHYDRATION [None]
  - DIARRHOEA [None]
  - HEPATIC FAILURE [None]
  - INFECTION IN AN IMMUNOCOMPROMISED HOST [None]
  - PANCYTOPENIA [None]
  - RENAL FAILURE [None]
  - SEPSIS [None]
